FAERS Safety Report 12377028 (Version 1)
Quarter: 2016Q2

REPORT INFORMATION
  Report Type: Spontaneous
  Country: US (occurrence: US)
  Receive Date: 20160517
  Receipt Date: 20160517
  Transmission Date: 20160815
  Serious: No
  Sender: FDA-Public Use
  Company Number: US-MALLINCKRODT-T201504230

PATIENT
  Age: 50 Year
  Sex: Female

DRUGS (1)
  1. H.P. ACTHAR [Suspect]
     Active Substance: CORTICOTROPIN
     Indication: MULTIPLE SCLEROSIS
     Dosage: 40 UNITS BIWEEKLY
     Route: 058
     Dates: start: 201505

REACTIONS (5)
  - Bone pain [Unknown]
  - Nausea [Unknown]
  - Muscle spasms [Unknown]
  - Skin exfoliation [Unknown]
  - Myalgia [Unknown]

NARRATIVE: CASE EVENT DATE: 201508
